FAERS Safety Report 9847373 (Version 1)
Quarter: 2014Q1

REPORT INFORMATION
  Report Type: Spontaneous
  Country: US (occurrence: US)
  Receive Date: 20140127
  Receipt Date: 20140127
  Transmission Date: 20141002
  Serious: No
  Sender: FDA-Public Use
  Company Number: US-MYLANLABS-2013S1006218

PATIENT
  Sex: Male

DRUGS (2)
  1. FINASTERIDE TABLETS, USP 5 MG (ATLLC) (FINASTERIDE) [Suspect]
     Indication: PROSTATOMEGALY
     Dates: start: 201008, end: 201010
  2. FINASTERIDE TABLETS, USP 5 MG (ATLLC) (FINASTERIDE) [Suspect]
     Indication: BENIGN PROSTATIC HYPERPLASIA
     Dates: start: 201008, end: 201010

REACTIONS (3)
  - Erectile dysfunction [Not Recovered/Not Resolved]
  - Hypogonadism [Not Recovered/Not Resolved]
  - Androgen deficiency [Not Recovered/Not Resolved]
